FAERS Safety Report 25223092 (Version 1)
Quarter: 2025Q2

REPORT INFORMATION
  Report Type: Spontaneous
  Country: CN (occurrence: CN)
  Receive Date: 20250422
  Receipt Date: 20250422
  Transmission Date: 20250717
  Serious: Yes (Hospitalization, Other)
  Sender: FRESENIUS KABI
  Company Number: CN-FreseniusKabi-FK202505432

PATIENT
  Age: 59 Year
  Sex: Male
  Weight: 62 kg

DRUGS (4)
  1. PROPOFOL [Suspect]
     Active Substance: PROPOFOL
     Indication: Anaesthesia
     Dosage: DOSAGE FORM: INJECTION
     Route: 040
     Dates: start: 20250329, end: 20250329
  2. CISATRACURIUM BESYLATE [Suspect]
     Active Substance: CISATRACURIUM BESYLATE
     Indication: Anaesthesia
     Dosage: DOSAGE FORN: INJECTION
     Route: 040
     Dates: start: 20250329, end: 20250329
  3. MIDAZOLAM HYDROCHLORIDE [Concomitant]
     Active Substance: MIDAZOLAM HYDROCHLORIDE
     Indication: Anaesthesia
     Dosage: DOSAGE FORN: INJECTION
     Route: 040
     Dates: start: 20250329, end: 20250329
  4. SUFENTANIL CITRATE [Concomitant]
     Active Substance: SUFENTANIL CITRATE
     Indication: Anaesthesia
     Dosage: DOSAGE FORN: INJECTION
     Route: 040
     Dates: start: 20250329, end: 20250329

REACTIONS (1)
  - Anaphylactic shock [Recovering/Resolving]

NARRATIVE: CASE EVENT DATE: 20250329
